FAERS Safety Report 7245692-7 (Version None)
Quarter: 2011Q1

REPORT INFORMATION
  Report Type: 
  Country: None (occurrence: None)
  Receive Date: 20110126
  Receipt Date: 20110114
  Transmission Date: 20110831
  Serious: Yes (Hospitalization)
  Sender: FDA-Public Use
  Company Number: US-ELI_LILLY_AND_COMPANY-US201011006680

PATIENT
  Sex: Male
  Weight: 107.48 kg

DRUGS (7)
  1. PEMETREXED [Suspect]
     Indication: SARCOMA
     Dosage: 1135 MG, EVERY Q 2 WKS
     Route: 042
     Dates: start: 20101112
  2. DOCETAXEL [Suspect]
     Indication: SARCOMA
     Dosage: 91 MG,  Q 2 WEEKS
     Route: 042
     Dates: start: 20101112
  3. POTASSIUM [Concomitant]
     Dosage: 20 MEQ, 2/D
  4. LOVENOX [Concomitant]
     Dosage: 100 MG, 2/D
     Route: 058
     Dates: start: 20101125
  5. FOLIC ACID [Concomitant]
     Dosage: 400 UG, DAILY (1/D)
     Route: 048
     Dates: start: 20101104
  6. VITAMIN B-12 [Concomitant]
     Dosage: 1000 UG, UNK
     Route: 030
     Dates: start: 20101104
  7. LOVENOX [Concomitant]
     Indication: DEEP VEIN THROMBOSIS
     Dosage: 120 MG, 2/D
     Route: 058

REACTIONS (1)
  - PNEUMATOSIS INTESTINALIS [None]
